FAERS Safety Report 10355454 (Version 1)
Quarter: 2014Q3

REPORT INFORMATION
  Report Type: Spontaneous
  Country: CH (occurrence: CH)
  Receive Date: 20140731
  Receipt Date: 20140731
  Transmission Date: 20150326
  Serious: Yes (Disabling, Other)
  Sender: FDA-Public Use
  Company Number: CH-PFIZER INC-2014207754

PATIENT
  Age: 29 Year
  Sex: Female

DRUGS (1)
  1. SAYANA [Suspect]
     Active Substance: MEDROXYPROGESTERONE
     Indication: CHEMICAL CONTRACEPTION
     Dosage: 1 DF, UNK
     Route: 058
     Dates: start: 20130903

REACTIONS (1)
  - Partial lipodystrophy [Not Recovered/Not Resolved]

NARRATIVE: CASE EVENT DATE: 2014
